FAERS Safety Report 6656104-6 (Version None)
Quarter: 2010Q1

REPORT INFORMATION
  Report Type: 
  Country: None (occurrence: None)
  Receive Date: 20100329
  Receipt Date: 20100319
  Transmission Date: 20100710
  Serious: Yes (Hospitalization)
  Sender: FDA-Public Use
  Company Number: B0641330A

PATIENT
  Sex: Female

DRUGS (3)
  1. LAMICTAL CD [Suspect]
     Indication: EPILEPSY
     Dosage: 150MG TWICE PER DAY
     Route: 048
  2. TEGRETOL [Suspect]
     Indication: EPILEPSY
     Dosage: 400MG TWICE PER DAY
     Route: 048
     Dates: end: 20100310
  3. URBANYL [Suspect]
     Indication: EPILEPSY
     Dosage: 10MG TWICE PER DAY
     Route: 048

REACTIONS (8)
  - ANTICONVULSANT DRUG LEVEL ABOVE THERAPEUTIC [None]
  - ATAXIA [None]
  - BALANCE DISORDER [None]
  - CEREBELLAR SYNDROME [None]
  - DIZZINESS [None]
  - DYSURIA [None]
  - ESCHERICHIA URINARY TRACT INFECTION [None]
  - PYREXIA [None]
